FAERS Safety Report 15467133 (Version 1)
Quarter: 2018Q4

REPORT INFORMATION
  Report Type: Spontaneous
  Country: US (occurrence: US)
  Receive Date: 20181005
  Receipt Date: 20181005
  Transmission Date: 20190204
  Serious: Yes (Hospitalization)
  Sender: FDA-Public Use
  Company Number: US-HORIZON-NVC-ACT-0280-2018

PATIENT
  Age: 20 Year
  Sex: Male

DRUGS (4)
  1. AMPHOTERICIN [Concomitant]
     Active Substance: AMPHOTERICIN B
  2. ACTIMMUNE [Suspect]
     Active Substance: INTERFERON GAMMA-1B
     Indication: NEUTROPHIL FUNCTION DISORDER
     Dosage: 100 MCG 3 TIMES WEEKLY
     Route: 058
  3. LEVAQUIN [Concomitant]
     Active Substance: LEVOFLOXACIN
  4. MEROPENEM. [Concomitant]
     Active Substance: MEROPENEM

REACTIONS (3)
  - Abscess [Unknown]
  - Abscess management [Unknown]
  - Pyrexia [Unknown]

NARRATIVE: CASE EVENT DATE: 20180815
